FAERS Safety Report 7810836-2 (Version None)
Quarter: 2011Q4

REPORT INFORMATION
  Report Type: 
  Country: None (occurrence: None)
  Receive Date: 20111013
  Receipt Date: 20110921
  Transmission Date: 20120403
  Serious: Yes (Hospitalization)
  Sender: FDA-Public Use
  Company Number: US-BAYER-2011-023453

PATIENT
  Age: 39 Year
  Sex: Female
  Weight: 107 kg

DRUGS (4)
  1. YASMIN [Suspect]
     Indication: MENSTRUATION IRREGULAR
  2. YASMIN [Suspect]
     Indication: CONTRACEPTION
     Dosage: UNK
     Dates: start: 20030601, end: 20040301
  3. PENICILLIN [Concomitant]
  4. LEXAPRO [Concomitant]

REACTIONS (13)
  - PAIN [None]
  - CHOLELITHIASIS [None]
  - SCAR [None]
  - INJURY [None]
  - FLATULENCE [None]
  - DYSPEPSIA [None]
  - DEPRESSION [None]
  - DIARRHOEA [None]
  - CHOLECYSTITIS CHRONIC [None]
  - ABDOMINAL DISTENSION [None]
  - ANXIETY [None]
  - GALLBLADDER DISORDER [None]
  - CONSTIPATION [None]
